FAERS Safety Report 20782954 (Version 3)
Quarter: 2022Q2

REPORT INFORMATION
  Report Type: Report from Study
  Country: TW (occurrence: TW)
  Receive Date: 20220504
  Receipt Date: 20220511
  Transmission Date: 20220721
  Serious: Yes (Death, Other)
  Sender: FDA-Public Use
  Company Number: TW-KARYOPHARM-2022KPT000518

PATIENT
  Age: 60 Year
  Sex: Male

DRUGS (10)
  1. SELINEXOR [Suspect]
     Active Substance: SELINEXOR
     Indication: Plasma cell myeloma
     Dosage: 40 MG, WEEKLY
     Route: 048
     Dates: start: 20210823
  2. SELINEXOR [Suspect]
     Active Substance: SELINEXOR
     Dosage: 20 MG, WEEKLY
     Route: 048
     Dates: start: 2021
  3. FLUIMUCIL A [Concomitant]
     Dosage: 600 MG, BID
  4. FAMO [Concomitant]
     Dosage: 20 MG, QD HS
  5. FEBUXOSTAT [Concomitant]
     Active Substance: FEBUXOSTAT
     Dosage: 40 MG, QOD
  6. MORPHINE SULFATE [Concomitant]
     Active Substance: MORPHINE SULFATE
     Dosage: 15 MG, BID
  7. MOPRIDE [MOSAPRIDE CITRATE] [Concomitant]
     Dosage: 5 MG, BID
  8. THROUGH [Concomitant]
     Dosage: 40 MG, HS PRN
  9. BACIDE [Concomitant]
     Dosage: 400 MG, QDAC
  10. PREDNISOLONE [Concomitant]
     Active Substance: PREDNISOLONE

REACTIONS (4)
  - Pneumonia [Fatal]
  - Bacteraemia [Unknown]
  - Diarrhoea [Unknown]
  - Plasma cell myeloma [Unknown]

NARRATIVE: CASE EVENT DATE: 20210101
